FAERS Safety Report 23977322 (Version 1)
Quarter: 2024Q2

REPORT INFORMATION
  Report Type: Spontaneous
  Country: US (occurrence: None)
  Receive Date: 20240614
  Receipt Date: 20240614
  Transmission Date: 20240716
  Serious: Yes (Life-Threatening, Hospitalization)
  Sender: FDA-Public Use
  Company Number: None

PATIENT
  Age: 78 Year
  Sex: Male

DRUGS (1)
  1. ELIQUIS [Suspect]
     Active Substance: APIXABAN

REACTIONS (5)
  - Dizziness [None]
  - Syncope [None]
  - Blood pressure systolic decreased [None]
  - Haemothorax [None]
  - General physical health deterioration [None]

NARRATIVE: CASE EVENT DATE: 20240611
